FAERS Safety Report 25876014 (Version 1)
Quarter: 2025Q4

REPORT INFORMATION
  Report Type: Spontaneous
  Country: EU (occurrence: EU)
  Receive Date: 20251003
  Receipt Date: 20251003
  Transmission Date: 20260118
  Serious: Yes (Hospitalization)
  Sender: STALLERGENES
  Company Number: EU-STALCOR-2025-AER-02751

PATIENT
  Age: 7 Year
  Sex: Female

DRUGS (1)
  1. PALFORZIA [Suspect]
     Active Substance: PEANUT
     Indication: Food allergy
     Dosage: CUMULATIVE DOSE: 12MG
     Route: 048

REACTIONS (5)
  - Aphasia [Recovered/Resolved]
  - Asthma [Unknown]
  - Abdominal pain [Recovered/Resolved]
  - Erythema [Recovered/Resolved]
  - Wheezing [Recovered/Resolved]

NARRATIVE: CASE EVENT DATE: 20250924
